FAERS Safety Report 8599317-9 (Version None)
Quarter: 2012Q3

REPORT INFORMATION
  Report Type: 
  Country: None (occurrence: None)
  Receive Date: 20120816
  Receipt Date: 20120810
  Transmission Date: 20120928
  Serious: Yes (Other)
  Sender: FDA-Public Use
  Company Number: VN-JNJFOC-20120805424

PATIENT
  Sex: Male
  Weight: 72 kg

DRUGS (2)
  1. STELARA [Suspect]
     Indication: PSORIASIS
     Route: 058
     Dates: start: 20120420
  2. STELARA [Suspect]
     Route: 058
     Dates: start: 20120518

REACTIONS (3)
  - PLATELET COUNT DECREASED [None]
  - BLOOD CREATININE INCREASED [None]
  - RED BLOOD CELL COUNT DECREASED [None]
